FAERS Safety Report 18637229 (Version 2)
Quarter: 2022Q3

REPORT INFORMATION
  Report Type: Spontaneous
  Country: BR (occurrence: BR)
  Receive Date: 20201218
  Receipt Date: 20220714
  Transmission Date: 20221027
  Serious: Yes (Other)
  Sender: FDA-Public Use
  Company Number: BR-GLAXOSMITHKLINE-BR2020AMR247408

PATIENT

DRUGS (9)
  1. COAL TAR [Suspect]
     Active Substance: COAL TAR
     Indication: Product used for unknown indication
     Dosage: UNK
  2. ACITRETIN [Suspect]
     Active Substance: ACITRETIN
     Indication: Psoriasis
     Dosage: UNK
     Route: 048
  3. ACITRETIN [Suspect]
     Active Substance: ACITRETIN
     Indication: Psoriatic arthropathy
  4. CALCIPOTRIENE [Suspect]
     Active Substance: CALCIPOTRIENE
     Indication: Product used for unknown indication
     Dosage: UNK
  5. METHOTREXATE [Suspect]
     Active Substance: METHOTREXATE
     Indication: Psoriasis
     Dosage: UNK
     Route: 048
  6. METHOTREXATE [Suspect]
     Active Substance: METHOTREXATE
     Indication: Psoriatic arthropathy
  7. INFLIXIMAB [Suspect]
     Active Substance: INFLIXIMAB
     Indication: Psoriasis
     Dosage: 100 MG, 2 AMPOULE EVERY 8 WEEKS
     Route: 042
  8. INFLIXIMAB [Suspect]
     Active Substance: INFLIXIMAB
     Indication: Psoriatic arthropathy
     Dosage: 100 MG, 1 AMPOULE EVERY 8 WEEKS
     Route: 042
  9. PENICILLIN G BENZATHINE [Suspect]
     Active Substance: PENICILLIN G BENZATHINE
     Indication: Erysipelas
     Dosage: UNK
     Route: 030

REACTIONS (10)
  - Injury [Unknown]
  - Erysipelas [Not Recovered/Not Resolved]
  - Road traffic accident [Unknown]
  - Haematoma [Unknown]
  - Upper limb fracture [Unknown]
  - Thermal burn [Unknown]
  - Sensory disturbance [Unknown]
  - Ligament sprain [Unknown]
  - Inflammation [Unknown]
  - Drug ineffective [Unknown]
